FAERS Safety Report 6234943-3 (Version None)
Quarter: 2009Q2

REPORT INFORMATION
  Report Type: 
  Country: None (occurrence: None)
  Receive Date: 20090618
  Receipt Date: 20090612
  Transmission Date: 20091009
  Serious: Yes (Hospitalization)
  Sender: FDA-Public Use
  Company Number: B0576470A

PATIENT
  Sex: Male

DRUGS (11)
  1. SERETIDE [Suspect]
     Indication: ASTHMA
     Dosage: 500MCG TWICE PER DAY
     Route: 055
     Dates: start: 20071120, end: 20071222
  2. HYDROCORTISONE 10MG TAB [Concomitant]
     Indication: ASTHMA
     Route: 042
     Dates: start: 20071122, end: 20071220
  3. NEOPHYLLIN INJECTION [Concomitant]
     Indication: ASTHMA
     Route: 042
     Dates: start: 20071122, end: 20071220
  4. SOLU-MEDROL [Concomitant]
     Indication: ASTHMA
     Route: 042
     Dates: start: 20071123, end: 20071220
  5. UNIPHYL [Concomitant]
     Indication: ASTHMA
     Route: 048
  6. MEPTIN [Concomitant]
     Indication: ASTHMA
     Route: 048
     Dates: end: 20071206
  7. PREDNISOLONE [Concomitant]
     Indication: ASTHMA
     Route: 048
  8. SINGULAIR [Concomitant]
     Indication: ASTHMA
     Route: 048
  9. TALION [Concomitant]
     Route: 048
     Dates: start: 20071204, end: 20071210
  10. AVELOX [Concomitant]
     Route: 048
     Dates: start: 20071218, end: 20071224
  11. MEROPEN [Concomitant]
     Route: 042
     Dates: end: 20071127

REACTIONS (2)
  - ASTHMA [None]
  - CONDITION AGGRAVATED [None]
